FAERS Safety Report 16798554 (Version 4)
Quarter: 2019Q4

REPORT INFORMATION
  Report Type: Spontaneous
  Country: CA (occurrence: CA)
  Receive Date: 20190912
  Receipt Date: 20191125
  Transmission Date: 20200122
  Serious: Yes (Hospitalization)
  Sender: FDA-Public Use
  Company Number: CA-HORIZON-PRO-0180-2019

PATIENT
  Age: 38 Year
  Sex: Female

DRUGS (29)
  1. MICRONOR [Concomitant]
     Active Substance: NORETHINDRONE
  2. NEVANAC [Concomitant]
     Active Substance: NEPAFENAC
  3. PANTOLOC [Concomitant]
     Active Substance: PANTOPRAZOLE SODIUM
  4. IMITREX [Concomitant]
     Active Substance: SUMATRIPTAN SUCCINATE
  5. ADALAT [Concomitant]
     Active Substance: NIFEDIPINE
  6. COMBIGAN [Concomitant]
     Active Substance: BRIMONIDINE TARTRATE\TIMOLOL MALEATE
  7. GLYBURIDE. [Concomitant]
     Active Substance: GLYBURIDE
  8. PROPRANOLOL [Concomitant]
     Active Substance: PROPRANOLOL HYDROCHLORIDE
  9. PROCYSBI [Suspect]
     Active Substance: CYSTEAMINE BITARTRATE
     Indication: CYSTINOSIS
     Dosage: 1000 MG BID (TARGET)
     Dates: start: 20171114, end: 20190912
  10. SYNTHROID [Concomitant]
     Active Substance: LEVOTHYROXINE SODIUM
  11. TRAJENTA [Concomitant]
     Active Substance: LINAGLIPTIN
  12. DOMPERIDONE [Concomitant]
     Active Substance: DOMPERIDONE
  13. DIMENHYDRINATE. [Concomitant]
     Active Substance: DIMENHYDRINATE
  14. PREDNISOLONE. [Concomitant]
     Active Substance: PREDNISOLONE
  15. PRODIEM [Concomitant]
     Active Substance: SENNOSIDES
  16. CYCLOBENZAPRINE. [Concomitant]
     Active Substance: CYCLOBENZAPRINE
  17. AMITRIPTYLINE [Concomitant]
     Active Substance: AMITRIPTYLINE
  18. ATORVASTATIN [Concomitant]
     Active Substance: ATORVASTATIN
  19. CYTOMEL [Concomitant]
     Active Substance: LIOTHYRONINE SODIUM
  20. TERCONAZOLE. [Concomitant]
     Active Substance: TERCONAZOLE
  21. SENOKOT [Concomitant]
     Active Substance: SENNOSIDES
  22. LAX-A-DAY [Concomitant]
  23. TEVA-CEPHALEXIN [Concomitant]
     Active Substance: CEPHALEXIN
  24. APO-FLUCONAZOLE [Concomitant]
     Active Substance: FLUCONAZOLE
  25. DIFLUCAN [Concomitant]
     Active Substance: FLUCONAZOLE
  26. RANITIDINE. [Concomitant]
     Active Substance: RANITIDINE
  27. RAPAMUNE [Concomitant]
     Active Substance: SIROLIMUS
  28. PROGRAF [Concomitant]
     Active Substance: TACROLIMUS
  29. DIABETOL [Concomitant]

REACTIONS (6)
  - Haemoglobin decreased [Unknown]
  - Therapy cessation [Unknown]
  - Choking [Recovered/Resolved]
  - Gastrointestinal tube insertion [Recovered/Resolved]
  - Oropharyngeal pain [Recovered/Resolved]
  - Blood glucose increased [Recovered/Resolved]

NARRATIVE: CASE EVENT DATE: 2019
